FAERS Safety Report 9683981 (Version 1)
Quarter: 2013Q4

REPORT INFORMATION
  Report Type: Spontaneous
  Country: US (occurrence: US)
  Receive Date: 20131112
  Receipt Date: 20131112
  Transmission Date: 20140711
  Serious: Yes (Other)
  Sender: FDA-Public Use
  Company Number: US-PFIZER INC-2013321390

PATIENT
  Age: 63 Year
  Sex: Female

DRUGS (2)
  1. DILANTIN [Suspect]
     Dosage: UNK
  2. TRILEPTAL [Suspect]
     Dosage: UNK

REACTIONS (4)
  - Blindness [Unknown]
  - Abasia [Unknown]
  - Vomiting [Unknown]
  - Rash [Unknown]
